FAERS Safety Report 6796345-0 (Version None)
Quarter: 2010Q2

REPORT INFORMATION
  Report Type: 
  Country: None (occurrence: None)
  Receive Date: 20100622
  Receipt Date: 20100603
  Transmission Date: 20101027
  Serious: Yes (Life-Threatening, Hospitalization, Other)
  Sender: FDA-Public Use
  Company Number: GB-ACCORD-005360

PATIENT
  Age: 52 Year
  Sex: Male

DRUGS (5)
  1. SIMVASTATIN [Suspect]
     Indication: DRUG USE FOR UNKNOWN INDICATION
     Dosage: 4000-MG-1.00PER / ORAL -1.0DAYS
     Route: 048
  2. FUSIDIC ACID [Suspect]
     Indication: LOCALISED INFECTION
     Dosage: 500.00-MG-3.00PE/R-1.0DAYS
  3. AMLODIPINE [Concomitant]
  4. FLOXACILLIN (FLOXACILLIN) [Concomitant]
  5. HUMALOG MIX 25 (HUMALOG MIX 25) [Concomitant]

REACTIONS (7)
  - ALANINE AMINOTRANSFERASE INCREASED [None]
  - ASPARTATE AMINOTRANSFERASE INCREASED [None]
  - DRUG INTERACTION [None]
  - HAEMODIALYSIS [None]
  - RENAL FAILURE [None]
  - RESPIRATORY DISORDER [None]
  - RHABDOMYOLYSIS [None]
